FAERS Safety Report 11809771 (Version 1)
Quarter: 2015Q4

REPORT INFORMATION
  Report Type: Spontaneous
  Country: AR (occurrence: AR)
  Receive Date: 20151208
  Receipt Date: 20151208
  Transmission Date: 20160305
  Serious: Yes (Other)
  Sender: FDA-Public Use
  Company Number: AR-PFIZER INC-2015408991

PATIENT
  Age: 63 Year
  Sex: Male

DRUGS (1)
  1. SUTENT [Suspect]
     Active Substance: SUNITINIB MALATE
     Indication: METASTATIC RENAL CELL CARCINOMA
     Dosage: 50 MG, CYCLIC (21/10 DAYS SCHEME)
     Dates: start: 20151026

REACTIONS (3)
  - Abasia [Unknown]
  - Sciatica [Unknown]
  - Vomiting [Unknown]
